FAERS Safety Report 11895604 (Version 1)
Quarter: 2016Q1

REPORT INFORMATION
  Report Type: Spontaneous
  Country: US (occurrence: None)
  Receive Date: 20160106
  Receipt Date: 20160106
  Transmission Date: 20160526
  Serious: No
  Sender: FDA-Public Use
  Company Number: None

PATIENT

DRUGS (2)
  1. DR.WIN^S ANTI-FUNGAL NAIL DROPS [Suspect]
     Active Substance: CLOTRIMAZOLE
     Dosage: DROPS, BOTTLE
     Route: 061
  2. LATANOPROST GLAUCOMA DROPS [Suspect]
     Active Substance: LATANOPROST

REACTIONS (1)
  - Accidental exposure to product [None]
